FAERS Safety Report 16395810 (Version 1)
Quarter: 2019Q2

REPORT INFORMATION
  Report Type: Spontaneous
  Country: US (occurrence: US)
  Receive Date: 20190605
  Receipt Date: 20190605
  Transmission Date: 20190711
  Serious: Yes (Hospitalization)
  Sender: FDA-Public Use
  Company Number: US-VERTEX PHARMACEUTICALS-2019-004949

PATIENT
  Sex: Male

DRUGS (27)
  1. PULMOZYME [Concomitant]
     Active Substance: DORNASE ALFA
  2. CALCIUM +VIT D [Concomitant]
     Active Substance: CALCIUM\VITAMIN D
  3. KITABIS PAK [Concomitant]
     Active Substance: TOBRAMYCIN
  4. SMZ-TMP [Concomitant]
     Active Substance: SULFAMETHOXAZOLE\TRIMETHOPRIM
  5. ARIPIPRAZOLE. [Concomitant]
     Active Substance: ARIPIPRAZOLE
  6. GAMUNEX-C [Concomitant]
     Active Substance: HUMAN IMMUNOGLOBULIN G
  7. K-TAB [Concomitant]
     Active Substance: POTASSIUM CHLORIDE
  8. OMEGA                              /00661201/ [Concomitant]
  9. URSODIOL. [Concomitant]
     Active Substance: URSODIOL
  10. ZENPEP [Concomitant]
     Active Substance: PANCRELIPASE AMYLASE\PANCRELIPASE LIPASE\PANCRELIPASE PROTEASE
  11. ACIDOPHILUS [Concomitant]
     Active Substance: LACTOBACILLUS ACIDOPHILUS
  12. HIZENTRA [Concomitant]
     Active Substance: HUMAN IMMUNOGLOBULIN G
  13. FLOVENT HFA [Concomitant]
     Active Substance: FLUTICASONE PROPIONATE
  14. HYDROXYZINE HCL [Concomitant]
     Active Substance: HYDROXYZINE HYDROCHLORIDE
  15. ALENDRONATE [Concomitant]
     Active Substance: ALENDRONATE SODIUM
  16. FLUTICASONE. [Concomitant]
     Active Substance: FLUTICASONE
  17. HYPERSAL [Concomitant]
     Active Substance: SODIUM CHLORIDE
  18. DEXMETHYLPHENIDATE [Concomitant]
     Active Substance: DEXMETHYLPHENIDATE HYDROCHLORIDE
  19. MILK THISTLE PLUS                  /08512201/ [Concomitant]
  20. PREDNISONE. [Concomitant]
     Active Substance: PREDNISONE
  21. DIPHENHYDRAMINE. [Concomitant]
     Active Substance: DIPHENHYDRAMINE
  22. SYMDEKO [Suspect]
     Active Substance: IVACAFTOR\TEZACAFTOR
     Indication: CYSTIC FIBROSIS
     Dosage: 1 DOSAGE FORM, BID
     Route: 048
     Dates: start: 20180424
  23. MAGNESIUM [Concomitant]
     Active Substance: MAGNESIUM
  24. BENTOLIN [Concomitant]
     Active Substance: ALBUTEROL
  25. COLISTIMETHATE                     /00013204/ [Concomitant]
     Active Substance: COLISTIMETHATE SODIUM
  26. OMEPRAZOLE. [Concomitant]
     Active Substance: OMEPRAZOLE
  27. VYVANSE [Concomitant]
     Active Substance: LISDEXAMFETAMINE DIMESYLATE

REACTIONS (1)
  - Cystic fibrosis [Not Recovered/Not Resolved]

NARRATIVE: CASE EVENT DATE: 2019
